FAERS Safety Report 5228793-4 (Version None)
Quarter: 2007Q1

REPORT INFORMATION
  Report Type: 
  Country: None (occurrence: None)
  Receive Date: 20070205
  Receipt Date: 20070122
  Transmission Date: 20070707
  Serious: Yes (Hospitalization)
  Sender: FDA-Public Use
  Company Number: PHRM2007FR00607

PATIENT
  Age: 74 Year
  Sex: Female
  Weight: 47 kg

DRUGS (3)
  1. EXELON [Suspect]
     Indication: DEMENTIA ALZHEIMER'S TYPE
     Dosage: 3 MG, BID
     Route: 048
     Dates: start: 20061216, end: 20061217
  2. STABLON [Concomitant]
     Dosage: 12.5 MG, QD
     Route: 048
  3. CACIT D3 [Concomitant]
     Dosage: 1 DF, QD
     Route: 048

REACTIONS (9)
  - ATRIAL FIBRILLATION [None]
  - CHILLS [None]
  - INCORRECT DOSE ADMINISTERED [None]
  - MITRAL VALVE INCOMPETENCE [None]
  - NAUSEA [None]
  - VENTRICULAR HYPERKINESIA [None]
  - VENTRICULAR INTERNAL DIAMETER ABNORMAL [None]
  - VENTRICULAR TACHYCARDIA [None]
  - VOMITING [None]
